FAERS Safety Report 4775629-1 (Version None)
Quarter: 2005Q3

REPORT INFORMATION
  Report Type: 
  Country: None (occurrence: None)
  Receive Date: 20050920
  Receipt Date: 20050920
  Transmission Date: 20060218
  Serious: Yes (Life-Threatening, Other)
  Sender: FDA-Public Use
  Company Number: None

PATIENT
  Age: 49 Year
  Sex: Female

DRUGS (1)
  1. PPD [Suspect]
     Dosage: MULTI
     Route: 023
     Dates: start: 20050906, end: 20050906

REACTIONS (3)
  - ERYTHEMA [None]
  - PAIN [None]
  - THROAT TIGHTNESS [None]
